FAERS Safety Report 15060626 (Version 2)
Quarter: 2018Q2

REPORT INFORMATION
  Report Type: Spontaneous
  Country: US (occurrence: US)
  Receive Date: 20180625
  Receipt Date: 20180627
  Transmission Date: 20180711
  Serious: No
  Sender: FDA-Public Use
  Company Number: US-PFIZER INC-2018254779

PATIENT
  Age: 59 Year
  Sex: Male
  Weight: 89.81 kg

DRUGS (2)
  1. LYRICA [Suspect]
     Active Substance: PREGABALIN
     Indication: HERPES ZOSTER
     Dosage: 75 MG, 2X/DAY
     Route: 048
     Dates: start: 20180615
  2. LYRICA [Suspect]
     Active Substance: PREGABALIN
     Dosage: 75 MG, 3X/DAY
     Route: 048

REACTIONS (6)
  - Burning sensation [Unknown]
  - Dyspnoea [Unknown]
  - Chest discomfort [Recovering/Resolving]
  - Paraesthesia [Unknown]
  - Drug ineffective [Not Recovered/Not Resolved]
  - Ear discomfort [Unknown]

NARRATIVE: CASE EVENT DATE: 20180617
